FAERS Safety Report 6277508-X (Version None)
Quarter: 2009Q3

REPORT INFORMATION
  Report Type: 
  Country: None (occurrence: None)
  Receive Date: 20090717
  Receipt Date: 20090717
  Transmission Date: 20100115
  Serious: Yes (Other)
  Sender: FDA-Public Use
  Company Number: None

PATIENT
  Age: 30 Year
  Sex: Female
  Weight: 56.6996 kg

DRUGS (1)
  1. PAXIL [Suspect]
     Indication: DEPRESSION
     Dosage: 20 MG ONCE A DAY PO
     Route: 048
     Dates: start: 19971111, end: 19990701

REACTIONS (6)
  - ANOSOGNOSIA [None]
  - FLAT AFFECT [None]
  - INAPPROPRIATE AFFECT [None]
  - LIBIDO DECREASED [None]
  - NERVOUS SYSTEM DISORDER [None]
  - PARTNER STRESS [None]
